FAERS Safety Report 5389844-X (Version None)
Quarter: 2007Q3

REPORT INFORMATION
  Report Type: 
  Country: None (occurrence: None)
  Receive Date: 20070718
  Receipt Date: 20070709
  Transmission Date: 20080115
  Serious: Yes (Other)
  Sender: FDA-Public Use
  Company Number: PHEH2007US03845

PATIENT
  Age: 69 Year
  Sex: Female
  Weight: 80.725 kg

DRUGS (1)
  1. ZELMAC HTF+TAB [Suspect]
     Dosage: 1 DF, BID
     Route: 048
     Dates: start: 20060301, end: 20070301

REACTIONS (5)
  - ANGINA PECTORIS [None]
  - CARDIAC STRESS TEST NORMAL [None]
  - CHEST PAIN [None]
  - MITRAL VALVE INCOMPETENCE [None]
  - MITRAL VALVE PROLAPSE [None]
